FAERS Safety Report 9226792 (Version 1)
Quarter: 2013Q2

REPORT INFORMATION
  Report Type: Spontaneous
  Country: US (occurrence: None)
  Receive Date: 20130410
  Receipt Date: 20130410
  Transmission Date: 20140414
  Serious: Yes (Other)
  Sender: FDA-Public Use
  Company Number: None

PATIENT
  Age: 56 Year
  Sex: Male
  Weight: 95.5 kg

DRUGS (3)
  1. LOSARTAN [Suspect]
     Indication: HYPERTENSION
     Dosage: 50 MG DAILY 0047
     Dates: start: 20130312, end: 20130408
  2. OMEPRAZOLE [Concomitant]
  3. CYANOCOBALAMIN [Concomitant]

REACTIONS (4)
  - Hypertension [None]
  - Incorrect dose administered [None]
  - Drug ineffective [None]
  - Product quality issue [None]
